FAERS Safety Report 10194190 (Version 1)
Quarter: 2014Q2

REPORT INFORMATION
  Report Type: Spontaneous
  Country: US (occurrence: US)
  Receive Date: 20140524
  Receipt Date: 20140524
  Transmission Date: 20141212
  Serious: No
  Sender: FDA-Public Use
  Company Number: US-SANOFI-AVENTIS-2013SA069304

PATIENT
  Age: 76 Year
  Sex: Female

DRUGS (3)
  1. LANTUS SOLOSTAR [Suspect]
     Indication: TYPE 2 DIABETES MELLITUS
     Dosage: TAKEN FROM:ATLEAST 2 YEARS DOSE:22 UNIT(S)
     Route: 051
  2. HUMALOG [Suspect]
     Dosage: DOSE: 5 UNITS IN THE MORNING AND 5 UNITS IN THE EVENING DOSE:6 UNIT(S)
     Route: 065
  3. SOLOSTAR [Concomitant]
     Indication: TYPE 2 DIABETES MELLITUS
     Dosage: TAKEN FROM:ATLEAST 2 YEARS

REACTIONS (4)
  - Pigmentation disorder [Unknown]
  - Injection site reaction [Unknown]
  - Injection site discolouration [Not Recovered/Not Resolved]
  - Injection site bruising [Not Recovered/Not Resolved]
